FAERS Safety Report 6261426-7 (Version None)
Quarter: 2009Q3

REPORT INFORMATION
  Report Type: 
  Country: None (occurrence: None)
  Receive Date: 20090709
  Receipt Date: 20090616
  Transmission Date: 20100115
  Serious: Yes (Other)
  Sender: FDA-Public Use
  Company Number: FR-BAYER-200923678GPV

PATIENT
  Age: 0 Hour
  Weight: 3.94 kg

DRUGS (2)
  1. CHRONADALATE VIA MOTHER [Suspect]
     Indication: DRUG USE FOR UNKNOWN INDICATION
     Route: 050
     Dates: start: 20060815
  2. CHRONADALATE VIA MOTHER [Suspect]
     Route: 064
     Dates: start: 20051201, end: 20060815

REACTIONS (3)
  - ABDOMINAL PAIN [None]
  - DIARRHOEA [None]
  - DIARRHOEA HAEMORRHAGIC [None]
